FAERS Safety Report 9721450 (Version 1)
Quarter: 2013Q4

REPORT INFORMATION
  Report Type: Spontaneous
  Country: CA (occurrence: CA)
  Receive Date: 20131129
  Receipt Date: 20131129
  Transmission Date: 20140711
  Serious: Yes (Death, Other)
  Sender: FDA-Public Use
  Company Number: CA-ASTRAZENECA-2013SE86888

PATIENT
  Age: 56 Year
  Sex: Male
  Weight: 104 kg

DRUGS (20)
  1. CRESTOR [Suspect]
     Route: 048
  2. ALTACE [Suspect]
     Route: 048
  3. EFFEXOR XR [Suspect]
     Route: 065
  4. HYDROCHLOROTHIAZIDE [Suspect]
     Route: 065
  5. ELTROXIN [Suspect]
     Route: 065
  6. KALETRA [Suspect]
     Dosage: 3 DOSAGE FORMS , TOTAL, 4 YEARS
     Route: 048
  7. QVAR [Suspect]
     Route: 065
  8. TRUVADA [Suspect]
     Route: 065
  9. INTELENCE [Concomitant]
  10. IPRATROPIUM/SALBUTAMOL [Concomitant]
  11. LAMOTRIGINE [Concomitant]
  12. POTASSIUM CHLORIDE [Concomitant]
  13. PREZISTA [Concomitant]
  14. PROCARBAZINE [Concomitant]
  15. RABEPRAZOLE [Concomitant]
  16. RANITIDINE [Concomitant]
  17. ROSUVASTATIN [Concomitant]
  18. SEREVENT DISKUS [Concomitant]
     Dosage: 50MCG/DOSE
  19. VALPROATE SEMISODIUM [Concomitant]
  20. RITONAVIR [Concomitant]

REACTIONS (3)
  - Asthma [Fatal]
  - Benign prostatic hyperplasia [Fatal]
  - Hepatic cancer [Fatal]
